FAERS Safety Report 9341591 (Version 2)
Quarter: 2013Q3

REPORT INFORMATION
  Report Type: Report from Study
  Country: FR (occurrence: FR)
  Receive Date: 20130611
  Receipt Date: 20130701
  Transmission Date: 20140515
  Serious: Yes (Death, Other)
  Sender: FDA-Public Use
  Company Number: FR-ROCHE-1232014

PATIENT
  Sex: 0

DRUGS (2)
  1. RITUXIMAB [Suspect]
     Indication: AUTOIMMUNE DISORDER
     Route: 042
  2. RITUXIMAB [Suspect]
     Indication: OFF LABEL USE

REACTIONS (10)
  - Interstitial lung disease [Fatal]
  - Shock [Fatal]
  - Lung disorder [Unknown]
  - Streptococcal sepsis [Unknown]
  - Pneumocystis jirovecii pneumonia [Unknown]
  - Arthritis bacterial [Unknown]
  - Infective tenosynovitis [Unknown]
  - Neutropenia [Unknown]
  - Cardiac failure acute [Unknown]
  - Skin exfoliation [Unknown]
